FAERS Safety Report 4901725-1 (Version None)
Quarter: 2006Q1

REPORT INFORMATION
  Report Type: 
  Country: None (occurrence: None)
  Receive Date: 20060206
  Receipt Date: 20060127
  Transmission Date: 20060701
  Serious: Yes (Hospitalization)
  Sender: FDA-Public Use
  Company Number: US-AVENTIS-200611114US

PATIENT
  Sex: Male

DRUGS (1)
  1. KETEK [Suspect]
     Indication: COUGH
     Route: 048
     Dates: start: 20060116

REACTIONS (3)
  - BLOOD CREATININE INCREASED [None]
  - MALAISE [None]
  - RENAL FAILURE [None]
